FAERS Safety Report 5096264-4 (Version None)
Quarter: 2006Q3

REPORT INFORMATION
  Report Type: 
  Country: None (occurrence: None)
  Receive Date: 20060830
  Receipt Date: 20060817
  Transmission Date: 20061208
  Serious: Yes (Hospitalization, Other)
  Sender: FDA-Public Use
  Company Number: DEWYE428231JUL06

PATIENT
  Age: 71 Year
  Sex: Female

DRUGS (4)
  1. VENLAFAXINE HCL [Suspect]
     Dosage: 100 CAPSULES (OVERDOSE MAOUNT 7500MG, ORAL
     Route: 048
     Dates: start: 20060728, end: 20060728
  2. MELPERONE (MELPERONE, , 0) [Suspect]
     Dosage: 100 TABLETS (OVERDOSE AMOUNT 2500MG), ORAL
     Route: 048
     Dates: start: 20060728, end: 20060728
  3. MEMANTINE (MEMANTINE, , 0) [Suspect]
     Dosage: 100 TABLETS(OECVRDOSE AMOUNT 1000MG, ORAL
     Route: 048
     Dates: start: 20060728, end: 20060728
  4. REMERON [Suspect]
     Dosage: 100 TABLETS (OVERDOSE AMOUNT 3000MG), ORAL
     Route: 048
     Dates: start: 20060728, end: 20060728

REACTIONS (8)
  - ASPIRATION [None]
  - ATRIOVENTRICULAR BLOCK FIRST DEGREE [None]
  - BLOOD CREATINE PHOSPHOKINASE INCREASED [None]
  - BRADYCARDIA [None]
  - COMA [None]
  - MULTIPLE DRUG OVERDOSE INTENTIONAL [None]
  - SUICIDE ATTEMPT [None]
  - VOMITING [None]
